FAERS Safety Report 11392148 (Version 1)
Quarter: 2015Q3

REPORT INFORMATION
  Report Type: Spontaneous
  Country: GB (occurrence: None)
  Receive Date: 20150814
  Receipt Date: 20150814
  Transmission Date: 20151125
  Serious: Yes (Life-Threatening, Disabling, Other)
  Sender: FDA-Public Use
  Company Number: 2015RR-101597

PATIENT
  Age: 69 Year
  Sex: Female
  Weight: 57.2 kg

DRUGS (1)
  1. LETROZOLE (LETROZOLE) UNKNOWN [Suspect]
     Active Substance: LETROZOLE
     Indication: BREAST CANCER
     Route: 048

REACTIONS (4)
  - Depression suicidal [None]
  - Tension [None]
  - Suicidal ideation [None]
  - Oral discomfort [None]

NARRATIVE: CASE EVENT DATE: 2013
